FAERS Safety Report 9415066 (Version 1)
Quarter: 2013Q3

REPORT INFORMATION
  Report Type: Report from Study
  Country: BR (occurrence: BR)
  Receive Date: 20130723
  Receipt Date: 20130723
  Transmission Date: 20140515
  Serious: Yes (Other)
  Sender: FDA-Public Use
  Company Number: PHHY2013BR077743

PATIENT
  Sex: Female
  Weight: 58 kg

DRUGS (10)
  1. EXELON [Suspect]
     Indication: MEMORY IMPAIRMENT
     Dosage: 1 DF, QD
     Route: 048
  2. TEGRETON CR [Concomitant]
     Dosage: UNK UKN, BID
  3. SIMVASTATIN [Concomitant]
     Dosage: UNK UKN, BID
  4. DRUG THERAPY NOS [Concomitant]
     Indication: DIABETES MELLITUS
     Dosage: UNK UKN, UNK
  5. DRUG THERAPY NOS [Concomitant]
     Indication: BLOOD PRESSURE
     Dosage: UNK UKN, UNK
  6. DRUG THERAPY NOS [Concomitant]
     Indication: BLOOD CHOLESTEROL INCREASED
     Dosage: UNK UKN, UNK
  7. SOMALGIN [Concomitant]
     Dosage: UNK UKN, UNK
  8. ATENOLOL [Concomitant]
     Dosage: UNK UKN, UNK
  9. AMLODIPINE [Concomitant]
     Dosage: UNK UKN, UNK
  10. HYDROCHLOROTHIAZIDE [Concomitant]
     Dosage: UNK UKN, UNK

REACTIONS (11)
  - Joint injury [Recovering/Resolving]
  - Diabetes mellitus [Recovering/Resolving]
  - Syncope [Recovering/Resolving]
  - Fall [Recovering/Resolving]
  - Blood cholesterol increased [Recovering/Resolving]
  - Blood triglycerides increased [Recovering/Resolving]
  - Vomiting [Recovering/Resolving]
  - Diarrhoea [Recovering/Resolving]
  - Malaise [Recovering/Resolving]
  - Dizziness [Recovering/Resolving]
  - Drug dispensing error [Recovering/Resolving]
